FAERS Safety Report 10639921 (Version 1)
Quarter: 2014Q4

REPORT INFORMATION
  Report Type: Spontaneous
  Country: US (occurrence: None)
  Receive Date: 20141208
  Receipt Date: 20141208
  Transmission Date: 20150529
  Serious: Yes (Death, Hospitalization, Congenital Anomaly)
  Sender: FDA-Public Use
  Company Number: None

PATIENT
  Age: 25 Year
  Sex: Female
  Weight: 58.97 kg

DRUGS (1)
  1. ZOFRAN [Suspect]
     Active Substance: ONDANSETRON HYDROCHLORIDE
     Indication: VOMITING IN PREGNANCY
     Dates: start: 20140501, end: 20140630

REACTIONS (7)
  - Foetal death [None]
  - Cerebral cyst [None]
  - Maternal exposure during pregnancy [None]
  - Limb malformation [None]
  - Maternal drugs affecting foetus [None]
  - Heart disease congenital [None]
  - Cystic lymphangioma [None]

NARRATIVE: CASE EVENT DATE: 20140630
